FAERS Safety Report 23455426 (Version 1)
Quarter: 2024Q1

REPORT INFORMATION
  Report Type: Spontaneous
  Country: US (occurrence: US)
  Receive Date: 20240130
  Receipt Date: 20240130
  Transmission Date: 20240409
  Serious: Yes (Other)
  Sender: FDA-Public Use
  Company Number: US-STRIDES ARCOLAB LIMITED-2023SP002218

PATIENT
  Age: 71 Year
  Sex: Male

DRUGS (4)
  1. METHOTREXATE [Suspect]
     Active Substance: METHOTREXATE
     Indication: B-cell small lymphocytic lymphoma
     Dosage: UNK, 2 TIMES A WEEK (BI-WEEKLY) TRIPLE THERAPY
     Route: 037
  2. METHOTREXATE [Suspect]
     Active Substance: METHOTREXATE
     Dosage: 3 GRAM PER SQUARE METRE
     Route: 065
  3. CYTARABINE [Suspect]
     Active Substance: CYTARABINE
     Indication: B-cell small lymphocytic lymphoma
     Dosage: UNK, 2 TIMES A WEEK (BI-WEEKLY), TRIPLE THERAPY
     Route: 037
  4. FLONASE [Concomitant]
     Active Substance: FLUTICASONE PROPIONATE
     Indication: B-cell small lymphocytic lymphoma
     Dosage: UNK
     Route: 065

REACTIONS (2)
  - Renal failure [Unknown]
  - Drug ineffective for unapproved indication [Unknown]
